FAERS Safety Report 7394483-5 (Version None)
Quarter: 2011Q2

REPORT INFORMATION
  Report Type: 
  Country: None (occurrence: None)
  Receive Date: 20110405
  Receipt Date: 20110323
  Transmission Date: 20111010
  Serious: Yes (Other)
  Sender: FDA-Public Use
  Company Number: PHHY2011DE05270

PATIENT
  Age: 28 Year
  Sex: Male

DRUGS (5)
  1. PARACETAMOL [Concomitant]
     Indication: HEADACHE
     Route: 048
  2. LEPONEX [Suspect]
     Indication: DEPRESSION
     Dosage: 250 MG, QD
     Route: 048
     Dates: start: 20101117, end: 20110117
  3. PANTOZOL [Concomitant]
     Indication: DYSPEPSIA
     Dosage: 40 MG
     Route: 048
     Dates: start: 20101127, end: 20110127
  4. ABILIFY [Concomitant]
     Indication: THINKING ABNORMAL
  5. ABILIFY [Concomitant]
     Indication: DEPRESSION
     Dosage: 15 MG
     Route: 048
     Dates: start: 20101210

REACTIONS (2)
  - GRANULOCYTOPENIA [None]
  - DEPRESSION [None]
